FAERS Safety Report 19690456 (Version 3)
Quarter: 2021Q3

REPORT INFORMATION
  Report Type: Spontaneous
  Country: ES (occurrence: ES)
  Receive Date: 20210812
  Receipt Date: 20210916
  Transmission Date: 20211014
  Serious: Yes (Death, Life-Threatening, Hospitalization, Other)
  Sender: FDA-Public Use
  Company Number: ES-AMGEN-ESPSP2021119174

PATIENT
  Age: 38 Year
  Sex: Male
  Weight: 83 kg

DRUGS (4)
  1. NPLATE [Suspect]
     Active Substance: ROMIPLOSTIM
     Indication: THROMBOCYTOPENIA
     Dosage: 250 MILLIGRAM, QWK
     Route: 065
     Dates: start: 20210415, end: 20210729
  2. ARANESP [Suspect]
     Active Substance: DARBEPOETIN ALFA
     Indication: ANAEMIA
     Dosage: 300 MILLIGRAM, QWK
     Route: 058
     Dates: start: 20210727, end: 20210729
  3. VALGANCICLOVIR. [Concomitant]
     Active Substance: VALGANCICLOVIR
     Indication: CYTOMEGALOVIRUS INFECTION
  4. BENZETACIL [BENZATHINE BENZYLPENICILLIN] [Concomitant]
     Active Substance: PENICILLIN G BENZATHINE
     Indication: PSORIASIS

REACTIONS (3)
  - Haemolysis [Fatal]
  - Bone marrow failure [Fatal]
  - Aplasia pure red cell [Not Recovered/Not Resolved]

NARRATIVE: CASE EVENT DATE: 20210727
